FAERS Safety Report 8859410 (Version 3)
Quarter: 2012Q4

REPORT INFORMATION
  Report Type: 
  Country: US (occurrence: US)
  Receive Date: 20121024
  Receipt Date: 20121206
  Transmission Date: 20130627
  Serious: Yes (Hospitalization, Other)
  Sender: FDA-Public Use
  Company Number: US-GILEAD-2012-0063445

PATIENT
  Sex: Female

DRUGS (3)
  1. LETAIRIS [Suspect]
     Indication: PULMONARY ARTERIAL HYPERTENSION
     Dosage: 10 mg, QD
     Route: 048
     Dates: start: 20111206
  2. TYVASO [Concomitant]
  3. REVATIO [Concomitant]

REACTIONS (6)
  - Haemorrhage [Unknown]
  - Transfusion [Unknown]
  - Haemorrhage [Unknown]
  - Nasopharyngitis [Unknown]
  - Endoscopy [Unknown]
  - Colonoscopy [Unknown]
